FAERS Safety Report 26162761 (Version 1)
Quarter: 2025Q4

REPORT INFORMATION
  Report Type: Spontaneous
  Country: US (occurrence: None)
  Receive Date: 20251216
  Receipt Date: 20251216
  Transmission Date: 20260118
  Serious: Yes (Life-Threatening)
  Sender: FDA-CTU
  Company Number: None

PATIENT
  Age: 47 Year
  Sex: Male
  Weight: 148.5 kg

DRUGS (2)
  1. OZEMPIC [Suspect]
     Active Substance: SEMAGLUTIDE
  2. AMLODIPINE BESYLATE\BENAZEPRIL HYDROCHLORIDE [Concomitant]
     Active Substance: AMLODIPINE BESYLATE\BENAZEPRIL HYDROCHLORIDE

REACTIONS (12)
  - Urticaria [None]
  - Abdominal discomfort [None]
  - Diarrhoea [None]
  - Vomiting [None]
  - Swollen tongue [None]
  - Pharyngeal swelling [None]
  - Wheezing [None]
  - Therapy interrupted [None]
  - Drug rechallenge positive [None]
  - Hyperphagia [None]
  - Gastrointestinal viral infection [None]
  - Immune-mediated adverse reaction [None]

NARRATIVE: CASE EVENT DATE: 20240215
